FAERS Safety Report 9165748 (Version 1)
Quarter: 2013Q1

REPORT INFORMATION
  Report Type: Spontaneous
  Country: US (occurrence: None)
  Receive Date: 20130314
  Receipt Date: 20130314
  Transmission Date: 20140127
  Serious: No
  Sender: FDA-Public Use
  Company Number: None

PATIENT
  Sex: Female

DRUGS (1)
  1. LORAZEPAM [Suspect]
     Indication: ANXIETY
     Dosage: 1 TABLET, 3X/DAY, ORAL
     Route: 048
     Dates: start: 2007, end: 2012

REACTIONS (1)
  - Lupus-like syndrome [None]
